FAERS Safety Report 19026187 (Version 1)
Quarter: 2021Q1

REPORT INFORMATION
  Report Type: Spontaneous
  Country: JP (occurrence: JP)
  Receive Date: 20210318
  Receipt Date: 20210318
  Transmission Date: 20210420
  Serious: Yes (Other)
  Sender: FDA-Public Use
  Company Number: JP-SUN PHARMACEUTICAL INDUSTRIES LTD-2021RR-285790

PATIENT
  Age: 42 Year
  Sex: Female

DRUGS (12)
  1. ANASTROZOLE. [Suspect]
     Active Substance: ANASTROZOLE
     Dosage: UNK
     Route: 065
  2. ANASTROZOLE. [Suspect]
     Active Substance: ANASTROZOLE
     Indication: HORMONE THERAPY
     Dosage: UNK
     Route: 048
  3. TAMOXIFEN [Suspect]
     Active Substance: TAMOXIFEN
     Indication: HORMONE THERAPY
     Dosage: UNK
     Route: 048
  4. BEVACIZUMAB. [Suspect]
     Active Substance: BEVACIZUMAB
     Indication: CHEMOTHERAPY
     Dosage: 10 MILLIGRAM/KILOGRAM DAYS 1 AND 15 1DOSE/4WEEKS, 6 COURSES
     Route: 042
  5. EPIRUBICIN HYDROCHLORIDE. [Suspect]
     Active Substance: EPIRUBICIN HYDROCHLORIDE
     Indication: BREAST CANCER
     Dosage: 60 MILLIGRAM/SQ. METER  DAY 1 1 DOSE/4 WEEKS 6 COURSES
     Route: 042
  6. ERIBULIN MESYLATE [Suspect]
     Active Substance: ERIBULIN MESYLATE
     Indication: CHEMOTHERAPY
     Dosage: 1.4 MILLIGRAM/SQ. METER DAYS 1 AND 8 1 DOSE/3 WEEKS
     Route: 048
  7. PACLITAXEL. [Suspect]
     Active Substance: PACLITAXEL
     Indication: BREAST CANCER METASTATIC
     Dosage: 90 MILLIGRAM/SQ. METER DAY 1 8 AND 15, 1DOSE/4WEEKS 6 COURSES
     Route: 042
  8. PACLITAXEL. [Suspect]
     Active Substance: PACLITAXEL
     Indication: BREAST CANCER
     Dosage: 80 MILLIGRAM/SQ. METER, DAYS 1, 8 AND 15,1DOSE/4WEEKS 2 COURSES
     Route: 042
     Dates: end: 200802
  9. GEMCITABINE. [Suspect]
     Active Substance: GEMCITABINE
     Indication: CHEMOTHERAPY
     Dosage: 1250 MILLIGRAM/SQ. METER DAYS 1 AND 8  1 DOSE/3 WEEKS
     Route: 042
  10. 5?FLUOROURACIL [Suspect]
     Active Substance: FLUOROURACIL
     Indication: BREAST CANCER METASTATIC
     Dosage: 100MG/ BODY/DAY, TWICE DAILY, FOR 28 CONSECUTIVE DAYS FOLLOWED BY A 14?DAY REST
     Route: 048
  11. FULVESTRANT. [Suspect]
     Active Substance: FULVESTRANT
     Indication: BREAST CANCER METASTATIC
     Dosage: 500MG/BODY DAYS 1 15 AND 29 AND EVERY 28 DAYS THEREAFTER
     Route: 030
  12. CYCLOPHOSPHAMIDE HYDRATE [Suspect]
     Active Substance: CYCLOPHOSPHAMIDE
     Indication: BREAST CANCER
     Dosage: 500 MILLIGRAM/SQ. METER, DAY 1 1DOSE/4WEEKS, 6 COURSES
     Route: 042

REACTIONS (3)
  - Malaise [Unknown]
  - Decreased appetite [Unknown]
  - Disease progression [Unknown]
